FAERS Safety Report 11644880 (Version 1)
Quarter: 2015Q4

REPORT INFORMATION
  Report Type: Other
  Country: US (occurrence: US)
  Receive Date: 20151020
  Receipt Date: 20151020
  Transmission Date: 20160304
  Serious: No
  Sender: FDA-Public Use
  Company Number: US-DEP_03287_2015

PATIENT
  Age: 82 Year
  Sex: Female

DRUGS (2)
  1. NUCYNTA ER [Suspect]
     Active Substance: TAPENTADOL HYDROCHLORIDE
     Indication: PAIN
     Route: 048
     Dates: start: 201507, end: 2015
  2. NUCYNTA [Suspect]
     Active Substance: TAPENTADOL HYDROCHLORIDE
     Indication: BACK PAIN
     Route: 048

REACTIONS (6)
  - Drug effect decreased [Unknown]
  - Constipation [Not Recovered/Not Resolved]
  - Dizziness [Recovering/Resolving]
  - Decreased appetite [Not Recovered/Not Resolved]
  - Product quality issue [Unknown]
  - Condition aggravated [Not Recovered/Not Resolved]

NARRATIVE: CASE EVENT DATE: 2015
